FAERS Safety Report 8072800-0 (Version None)
Quarter: 2012Q1

REPORT INFORMATION
  Report Type: 
  Country: None (occurrence: None)
  Receive Date: 20120126
  Receipt Date: 20120112
  Transmission Date: 20120608
  Serious: Yes (Other)
  Sender: FDA-Public Use
  Company Number: AU-JNJFOC-20110707284

PATIENT
  Sex: Male

DRUGS (3)
  1. REMICADE [Suspect]
     Route: 042
  2. REMICADE [Suspect]
     Route: 042
     Dates: start: 20110601, end: 20110701
  3. REMICADE [Suspect]
     Indication: CROHN'S DISEASE
     Route: 042
     Dates: start: 20100113

REACTIONS (6)
  - FISTULA REPAIR [None]
  - PYREXIA [None]
  - MALAISE [None]
  - FREQUENT BOWEL MOVEMENTS [None]
  - INFECTION [None]
  - ABDOMINAL PAIN [None]
